FAERS Safety Report 4342360-6 (Version None)
Quarter: 2004Q2

REPORT INFORMATION
  Report Type: 
  Country: None (occurrence: None)
  Receive Date: 20040415
  Receipt Date: 20040402
  Transmission Date: 20050107
  Serious: Yes (Other)
  Sender: FDA-Public Use
  Company Number: HQWYE337902APR04

PATIENT
  Age: 68 Year
  Sex: Female

DRUGS (50)
  1. RAPAMUNE [Suspect]
     Indication: PROPHYLAXIS AGAINST TRANSPLANT REJECTION
     Dosage: SEE IMAGE
     Route: 048
     Dates: start: 20040321, end: 20040323
  2. RAPAMUNE [Suspect]
     Indication: PROPHYLAXIS AGAINST TRANSPLANT REJECTION
     Dosage: SEE IMAGE
     Route: 048
     Dates: start: 20040324, end: 20040324
  3. RAPAMUNE [Suspect]
     Indication: PROPHYLAXIS AGAINST TRANSPLANT REJECTION
     Dosage: SEE IMAGE
     Route: 048
     Dates: start: 20040325, end: 20040330
  4. SEPTRA [Concomitant]
  5. ERYTHROPOIETIN (ERYTHROPOIETIN) [Concomitant]
  6. PREDNISONE [Concomitant]
  7. METHYLPREDNISOLONE [Concomitant]
  8. METHYLPREDNISOLONE [Concomitant]
  9. METHYLPREDNISOLONE [Concomitant]
  10. METHYLPREDNISOLONE [Concomitant]
  11. OMEPRAZOLE [Concomitant]
  12. OMEPRAZOLE [Concomitant]
  13. DOXAZOSIN MESLYLATE [Concomitant]
  14. AMLODIPINE [Concomitant]
  15. LORAZEPAM [Concomitant]
  16. LORAZEPAM [Concomitant]
  17. MYCOPHENOLATE MOFETIL (MYCOPHENOLATE MOFETIL) [Concomitant]
  18. MYCOPHENOLATE MOFETIL (MYCOPHENOLATE MOFETIL) [Concomitant]
  19. MYCOPHENOLATE MOFETIL (MYCOPHENOLATE MOFETIL) [Concomitant]
  20. MYCOPHENOLATE MOFETIL (MYCOPHENOLATE MOFETIL) [Concomitant]
  21. METAMIZOL (METAMIZOLE) [Concomitant]
  22. METAMIZOL (METAMIZOLE) [Concomitant]
  23. METAMIZOL (METAMIZOLE) [Concomitant]
  24. METAMIZOL (METAMIZOLE) [Concomitant]
  25. METAMIZOL (METAMIZOLE) [Concomitant]
  26. AUGMENTIN [Concomitant]
  27. MORPHINE [Concomitant]
  28. RANITIDINE [Concomitant]
  29. RANITIDINE [Concomitant]
  30. RANITIDINE [Concomitant]
  31. CEFTRIAXONE [Concomitant]
  32. CEFTRIAXONE [Concomitant]
  33. ACETAMINOPHEN [Concomitant]
  34. ACETAMINOPHEN [Concomitant]
  35. ACETAMINOPHEN [Concomitant]
  36. ACETAMINOPHEN [Concomitant]
  37. MORPHINE [Concomitant]
  38. ACETAMINOPHEN [Concomitant]
  39. ACETAMINOPHEN [Concomitant]
  40. NIFEDIPINE [Concomitant]
  41. FUROSEMIDE [Concomitant]
  42. YATROX (ONDANSETRON HYDROCHLORIDE) [Concomitant]
  43. POLARAMINE [Concomitant]
  44. CEFAZOLIN [Concomitant]
  45. PANTOCARM (PANTOPRAZOLE) [Concomitant]
  46. METOCLOPRAMIDE HYDROCHLORIDE [Concomitant]
  47. VANCOMYCIN [Concomitant]
  48. HEXAMIDINE (HEXAMIDINE) [Concomitant]
  49. NYSTATINE (NYSTATIN) [Concomitant]
  50. ACETAMINOPHEN [Concomitant]

REACTIONS (2)
  - KIDNEY TRANSPLANT REJECTION [None]
  - THROMBOTIC MICROANGIOPATHY [None]
